FAERS Safety Report 20965266 (Version 2)
Quarter: 2022Q3

REPORT INFORMATION
  Report Type: Spontaneous
  Country: AT (occurrence: AT)
  Receive Date: 20220616
  Receipt Date: 20220705
  Transmission Date: 20221027
  Serious: Yes (Disabling, Other)
  Sender: FDA-Public Use
  Company Number: AT-002147023-NVSC2022AT133424

PATIENT
  Age: 55 Year
  Sex: Female
  Weight: 50 kg

DRUGS (1)
  1. XOLAIR [Suspect]
     Active Substance: OMALIZUMAB
     Indication: Asthma
     Route: 058
     Dates: start: 20200820

REACTIONS (4)
  - Uveitis [Not Recovered/Not Resolved]
  - Blindness [Unknown]
  - Inappropriate schedule of product administration [Unknown]
  - Vision blurred [Unknown]

NARRATIVE: CASE EVENT DATE: 20220216
